FAERS Safety Report 14790730 (Version 1)
Quarter: 2018Q2

REPORT INFORMATION
  Report Type: Spontaneous
  Country: US (occurrence: US)
  Receive Date: 20180423
  Receipt Date: 20180423
  Transmission Date: 20180711
  Serious: No
  Sender: FDA-Public Use
  Company Number: US-ARBOR PHARMACEUTICALS, LLC-US-2017ARB000282

PATIENT

DRUGS (1)
  1. EDARBI [Suspect]
     Active Substance: AZILSARTAN KAMEDOXOMIL
     Indication: PRODUCT USED FOR UNKNOWN INDICATION
     Dosage: 40, UNK
     Dates: start: 20170221, end: 20170224

REACTIONS (3)
  - Headache [Unknown]
  - Feeling abnormal [Unknown]
  - Dizziness [Unknown]

NARRATIVE: CASE EVENT DATE: 201702
